FAERS Safety Report 23613128 (Version 1)
Quarter: 2024Q1

REPORT INFORMATION
  Report Type: Report from Study
  Country: US (occurrence: US)
  Receive Date: 20240308
  Receipt Date: 20240308
  Transmission Date: 20240410
  Serious: Yes (Other)
  Sender: FDA-Public Use
  Company Number: US-JAZZ PHARMACEUTICALS-2022-US-032965

PATIENT
  Sex: Female

DRUGS (12)
  1. XYWAV [Suspect]
     Active Substance: CALCIUM OXYBATE\MAGNESIUM OXYBATE\POTASSIUM OXYBATE\SODIUM OXYBATE
     Indication: Narcolepsy
     Dosage: UNK
  2. XYWAV [Suspect]
     Active Substance: CALCIUM OXYBATE\MAGNESIUM OXYBATE\POTASSIUM OXYBATE\SODIUM OXYBATE
     Indication: Cataplexy
  3. XYWAV [Suspect]
     Active Substance: CALCIUM OXYBATE\MAGNESIUM OXYBATE\POTASSIUM OXYBATE\SODIUM OXYBATE
     Indication: Somnolence
  4. PRIMIDONE [Suspect]
     Active Substance: PRIMIDONE
     Indication: Product used for unknown indication
  5. AMBIEN [Suspect]
     Active Substance: ZOLPIDEM TARTRATE
     Indication: Product used for unknown indication
  6. ASPIRIN [Concomitant]
     Active Substance: ASPIRIN
     Indication: Product used for unknown indication
     Dosage: 0000
     Dates: start: 20140307
  7. VITAMIN D3 [Concomitant]
     Active Substance: CHOLECALCIFEROL
     Indication: Product used for unknown indication
     Dosage: 0000
     Dates: start: 20140307
  8. METFORMIN HYDROCHLORIDE [Concomitant]
     Active Substance: METFORMIN HYDROCHLORIDE
     Indication: Product used for unknown indication
     Dosage: 0000
     Dates: start: 20140307
  9. TRAMADOL HCL [Concomitant]
     Active Substance: TRAMADOL HYDROCHLORIDE
     Indication: Product used for unknown indication
     Dosage: 0000
     Dates: start: 20200101
  10. GINKGO [Concomitant]
     Active Substance: GINKGO
     Indication: Product used for unknown indication
     Dosage: 0000
     Dates: start: 20220321
  11. BUTRANS [Concomitant]
     Active Substance: BUPRENORPHINE
     Indication: Product used for unknown indication
  12. CASEIN\DIETARY SUPPLEMENT\THEANINE [Concomitant]
     Active Substance: CASEIN\DIETARY SUPPLEMENT\THEANINE
     Indication: Product used for unknown indication
     Dosage: UNK
     Dates: start: 20230124

REACTIONS (12)
  - Macular degeneration [Unknown]
  - Cataract [Unknown]
  - Radiculotomy [Unknown]
  - Adverse reaction [Unknown]
  - Back pain [Unknown]
  - Pain [Unknown]
  - Arthralgia [Unknown]
  - Drug hypersensitivity [Unknown]
  - Tremor [Unknown]
  - Sciatica [Unknown]
  - Product administration interrupted [Unknown]
  - Intentional product use issue [Unknown]
